FAERS Safety Report 8933229 (Version 2)
Quarter: 2013Q2

REPORT INFORMATION
  Report Type: Spontaneous
  Country: NO (occurrence: NO)
  Receive Date: 20121129
  Receipt Date: 20130604
  Transmission Date: 20140414
  Serious: Yes (Hospitalization, Other)
  Sender: FDA-Public Use
  Company Number: PHHY2012NO108197

PATIENT
  Age: 37 Year
  Sex: Male

DRUGS (7)
  1. RITALIN [Suspect]
     Indication: ATTENTION DEFICIT/HYPERACTIVITY DISORDER
     Dosage: UNK UKN, UNK
     Dates: start: 200809
  2. RITALIN [Suspect]
     Dosage: 80 MG, UNK
  3. RITALIN [Suspect]
     Dosage: 40 MG X 2 PLUS 10 MG IN THE EVENING
     Dates: start: 2009, end: 2009
  4. AURORIX [Concomitant]
  5. XANOR [Concomitant]
     Dosage: UNK UKN, UNK
     Dates: start: 2006
  6. NEURONTIN [Concomitant]
  7. NEBIDO [Concomitant]

REACTIONS (10)
  - Cerebral disorder [Unknown]
  - Cardiomyopathy [Unknown]
  - Suicide attempt [Unknown]
  - Toxicity to various agents [Unknown]
  - Paranoia [Unknown]
  - Incorrect dose administered [Unknown]
  - Drug abuse [Unknown]
  - Psychotic disorder [Unknown]
  - Hallucination [Unknown]
  - Abnormal behaviour [Unknown]
